FAERS Safety Report 13179221 (Version 1)
Quarter: 2017Q1

REPORT INFORMATION
  Report Type: Spontaneous
  Country: US (occurrence: US)
  Receive Date: 20170202
  Receipt Date: 20170202
  Transmission Date: 20170428
  Serious: No
  Sender: FDA-Public Use
  Company Number: US-ASTRAZENECA-2017SE07975

PATIENT
  Age: 28340 Day
  Sex: Female

DRUGS (2)
  1. FARXIGA [Suspect]
     Active Substance: DAPAGLIFLOZIN PROPANEDIOL
     Indication: TYPE 2 DIABETES MELLITUS
     Route: 048
     Dates: start: 20170113, end: 20170120
  2. FARXIGA [Suspect]
     Active Substance: DAPAGLIFLOZIN PROPANEDIOL
     Indication: TYPE 2 DIABETES MELLITUS
     Route: 048
     Dates: start: 20170112

REACTIONS (4)
  - Nasopharyngitis [Not Recovered/Not Resolved]
  - Intentional product misuse [Recovered/Resolved]
  - Diabetes mellitus inadequate control [Unknown]
  - Extra dose administered [Unknown]

NARRATIVE: CASE EVENT DATE: 20170113
